FAERS Safety Report 9615862 (Version 1)
Quarter: 2013Q4

REPORT INFORMATION
  Report Type: Spontaneous
  Country: US (occurrence: US)
  Receive Date: 20131011
  Receipt Date: 20131011
  Transmission Date: 20140711
  Serious: No
  Sender: FDA-Public Use
  Company Number: US-GLAXOSMITHKLINE-A1037345A

PATIENT
  Age: 90 Year
  Sex: Male

DRUGS (2)
  1. JALYN [Suspect]
     Route: 048
     Dates: start: 20130705
  2. NO CONCURRENT MEDICATION [Concomitant]

REACTIONS (2)
  - Urticaria [Unknown]
  - Pruritus [Unknown]
